FAERS Safety Report 13713026 (Version 5)
Quarter: 2017Q4

REPORT INFORMATION
  Report Type: Report from Study
  Country: BR (occurrence: BR)
  Receive Date: 20170704
  Receipt Date: 20171102
  Transmission Date: 20180320
  Serious: Yes (Other)
  Sender: FDA-Public Use
  Company Number: PHHY2017BR095263

PATIENT
  Sex: Female
  Weight: 55 kg

DRUGS (3)
  1. ADDERA D3 [Concomitant]
     Active Substance: CHOLECALCIFEROL
     Indication: OSTEOPOROSIS
     Dosage: 2 DF, QW (MANY YEARS AGO)
     Route: 048
  2. ACLASTA [Suspect]
     Active Substance: ZOLEDRONIC ACID
     Indication: OSTEOPOROSIS
     Dosage: 1 DF (5 MG/100 ML), Q12MO
     Route: 042
     Dates: start: 20170709
  3. SALINE [Concomitant]
     Active Substance: SODIUM CHLORIDE
     Indication: LIVER DISORDER
     Route: 065

REACTIONS (14)
  - Immunodeficiency [Unknown]
  - Decreased appetite [Unknown]
  - Tremor [Recovering/Resolving]
  - Emotional disorder [Unknown]
  - Influenza [Recovering/Resolving]
  - Pain [Recovering/Resolving]
  - Nervousness [Unknown]
  - Dysstasia [Unknown]
  - Feeling cold [Recovering/Resolving]
  - Vomiting [Recovering/Resolving]
  - Nausea [Recovering/Resolving]
  - General physical health deterioration [Unknown]
  - Dehydration [Unknown]
  - Malaise [Unknown]
